FAERS Safety Report 10526746 (Version 2)
Quarter: 2014Q4

REPORT INFORMATION
  Report Type: Spontaneous
  Country: US (occurrence: US)
  Receive Date: 20141020
  Receipt Date: 20141031
  Transmission Date: 20150528
  Serious: No
  Sender: FDA-Public Use
  Company Number: US-BIOGENIDEC-2014BI106259

PATIENT
  Sex: Male

DRUGS (1)
  1. TECFIDERA [Suspect]
     Active Substance: DIMETHYL FUMARATE
     Indication: MULTIPLE SCLEROSIS
     Route: 048
     Dates: start: 20140916

REACTIONS (9)
  - Pyrexia [Recovered/Resolved]
  - Abdominal distension [Unknown]
  - Dyspepsia [Unknown]
  - Viral infection [Recovered/Resolved]
  - Malaise [Unknown]
  - Flushing [Unknown]
  - Abdominal discomfort [Recovered/Resolved]
  - Dizziness [Recovered/Resolved]
  - Nausea [Unknown]
